FAERS Safety Report 16614545 (Version 2)
Quarter: 2019Q4

REPORT INFORMATION
  Report Type: Spontaneous
  Country: CH (occurrence: CH)
  Receive Date: 20190723
  Receipt Date: 20191011
  Transmission Date: 20200122
  Serious: Yes (Death, Hospitalization)
  Sender: FDA-Public Use
  Company Number: CH-TEVA-2019-CH-1081507

PATIENT
  Sex: Male
  Weight: 2.32 kg

DRUGS (135)
  1. CORDARONE [Suspect]
     Active Substance: AMIODARONE HYDROCHLORIDE
     Indication: VENTRICULAR TACHYCARDIA
     Dosage: 200 MILLIGRAM DAILY;
     Route: 065
     Dates: start: 20180823, end: 20180823
  2. CORDARONE [Suspect]
     Active Substance: AMIODARONE HYDROCHLORIDE
     Dosage: 900 MILLIGRAM DAILY;
     Route: 065
     Dates: start: 20180916, end: 20180917
  3. CORDARONE [Suspect]
     Active Substance: AMIODARONE HYDROCHLORIDE
     Dosage: 200 MILLIGRAM DAILY;
     Route: 065
     Dates: start: 20180918
  4. BETALOC ZOK [Concomitant]
     Active Substance: METOPROLOL SUCCINATE
     Indication: PRODUCT USED FOR UNKNOWN INDICATION
     Dosage: 25 MILLIGRAM DAILY;
     Route: 048
     Dates: start: 20180820, end: 20180820
  5. BETALOC ZOK [Concomitant]
     Active Substance: METOPROLOL SUCCINATE
     Dosage: 25 MILLIGRAM DAILY;
     Route: 048
     Dates: start: 20180907, end: 20180910
  6. TORASEMIDE [Concomitant]
     Active Substance: TORSEMIDE
     Dosage: 10 MILLIGRAM DAILY;
     Route: 065
     Dates: start: 20180918, end: 20180918
  7. PHENPROCOUMON [Concomitant]
     Active Substance: PHENPROCOUMON
     Dosage: .75 MILLIGRAM DAILY;
     Route: 065
     Dates: start: 20180902, end: 20180905
  8. HEPARIN [Concomitant]
     Active Substance: HEPARIN SODIUM
     Dosage: 27500 IU (INTERNATIONAL UNIT) DAILY;
     Route: 065
     Dates: start: 20180828, end: 20180828
  9. FUROSEMIDE. [Concomitant]
     Active Substance: FUROSEMIDE
     Dosage: 12 MILLIGRAM DAILY;
     Route: 065
     Dates: start: 20180913, end: 20180913
  10. FUROSEMIDE. [Concomitant]
     Active Substance: FUROSEMIDE
     Dosage: 56 MILLIGRAM DAILY;
     Route: 065
     Dates: start: 20180915, end: 20180915
  11. PREDNISONE. [Concomitant]
     Active Substance: PREDNISONE
     Dosage: 25 MILLIGRAM DAILY;
     Route: 065
     Dates: start: 20180903, end: 20180907
  12. SENNOSIDES. [Concomitant]
     Active Substance: SENNOSIDES
     Dosage: 10 ML DAILY;
     Route: 065
     Dates: start: 20180918, end: 20180918
  13. GRANISETRON [Concomitant]
     Active Substance: GRANISETRON
     Dosage: 3 MILLIGRAM DAILY;
     Route: 065
     Dates: start: 20180909, end: 20180909
  14. GRANISETRON [Concomitant]
     Active Substance: GRANISETRON
     Dosage: 1 MILLIGRAM DAILY;
     Route: 065
     Dates: start: 20180914, end: 20180914
  15. CODEIN [Concomitant]
     Active Substance: CODEINE
     Dosage: 150 MILLIGRAM DAILY;
     Route: 065
     Dates: start: 20180912, end: 20180912
  16. CODEIN [Concomitant]
     Active Substance: CODEINE
     Dosage: 50 MILLIGRAM DAILY;
     Route: 065
     Dates: start: 20180916, end: 20180916
  17. VALSARTAN. [Concomitant]
     Active Substance: VALSARTAN
     Dosage: 200 MILLIGRAM DAILY;
     Route: 065
     Dates: start: 20180913, end: 20180913
  18. VALSARTAN. [Concomitant]
     Active Substance: VALSARTAN
     Dosage: 320 MILLIGRAM DAILY;
     Route: 065
     Dates: start: 20180914, end: 20180914
  19. LEVOSIMENDAN [Concomitant]
     Active Substance: LEVOSIMENDAN
     Dosage: 3.4 MILLIGRAM DAILY;
     Route: 065
     Dates: start: 20180915, end: 20180915
  20. DOMPERIDON [Concomitant]
     Active Substance: DOMPERIDONE
     Dosage: 20 MILLIGRAM DAILY;
     Route: 065
     Dates: start: 20180917, end: 20180917
  21. DOMPERIDON [Concomitant]
     Active Substance: DOMPERIDONE
     Dosage: 10 MILLIGRAM DAILY;
     Route: 065
     Dates: start: 20180918, end: 20180918
  22. MORPHINE [Concomitant]
     Active Substance: MORPHINE
     Dosage: 12 MILLIGRAM DAILY;
     Route: 065
     Dates: start: 20180917, end: 20180917
  23. METHYLPREDNISOLONE. [Concomitant]
     Active Substance: METHYLPREDNISOLONE
     Dosage: 125 MILLIGRAM DAILY;
     Route: 065
     Dates: start: 20180917, end: 20180917
  24. CO-AMOXICILLINE [Concomitant]
     Dosage: 1.2 GRAM DAILY;
     Route: 065
     Dates: start: 20180917, end: 20180918
  25. ROSUVASTATIN. [Suspect]
     Active Substance: ROSUVASTATIN
     Indication: HYPERCHOLESTEROLAEMIA
     Dosage: 10 MILLIGRAM DAILY; AT 18:00
     Route: 065
  26. CORDARONE [Suspect]
     Active Substance: AMIODARONE HYDROCHLORIDE
     Dosage: 200 MILLIGRAM DAILY;
     Route: 065
     Dates: start: 20180902, end: 20180911
  27. CORDARONE [Suspect]
     Active Substance: AMIODARONE HYDROCHLORIDE
     Dosage: 635 MILLIGRAM DAILY;
     Route: 065
     Dates: start: 20180914, end: 20180914
  28. SACUBITRIL/VALSARTAN [Interacting]
     Active Substance: SACUBITRIL\VALSARTAN
     Indication: PRODUCT USED FOR UNKNOWN INDICATION
     Dosage: 100 MILLIGRAM DAILY;
     Route: 065
     Dates: start: 20180820, end: 20180820
  29. TORASEMIDE [Concomitant]
     Active Substance: TORSEMIDE
     Indication: PRODUCT USED FOR UNKNOWN INDICATION
     Dosage: 20 MILLIGRAM DAILY;
     Route: 065
     Dates: start: 20180821, end: 20180824
  30. SPIRONOLACTONE. [Concomitant]
     Active Substance: SPIRONOLACTONE
     Indication: PRODUCT USED FOR UNKNOWN INDICATION
     Dosage: 12.5 MILLIGRAM DAILY;
     Route: 065
     Dates: start: 20180822, end: 20180829
  31. JANUVIA [Concomitant]
     Active Substance: SITAGLIPTIN PHOSPHATE
     Dosage: 100 MILLIGRAM DAILY;
     Route: 065
     Dates: start: 20180821, end: 20180828
  32. PHENPROCOUMON [Concomitant]
     Active Substance: PHENPROCOUMON
     Dosage: .75 MILLIGRAM DAILY;
     Route: 065
     Dates: start: 20180907, end: 20180907
  33. FUROSEMIDE. [Concomitant]
     Active Substance: FUROSEMIDE
     Dosage: 20 MILLIGRAM DAILY;
     Route: 065
     Dates: start: 20180824, end: 20180824
  34. SODIUM BICARBONATE. [Concomitant]
     Active Substance: SODIUM BICARBONATE
     Dosage: 500 MILLIGRAM DAILY;
     Route: 065
     Dates: start: 20180828, end: 20180828
  35. SODIUM BICARBONATE. [Concomitant]
     Active Substance: SODIUM BICARBONATE
     Dosage: 500 MILLIGRAM DAILY;
     Route: 065
     Dates: start: 20180910, end: 20180910
  36. PANTOPRAZOLE [Concomitant]
     Active Substance: PANTOPRAZOLE
     Dosage: 40 MILLIGRAM DAILY;
     Route: 065
     Dates: start: 20180829, end: 20180918
  37. DOBUTAMIN [Concomitant]
     Active Substance: DOBUTAMINE HYDROCHLORIDE
     Dosage: 0-300 MCG/^
     Route: 065
     Dates: start: 20180910, end: 20180912
  38. DOBUTAMIN [Concomitant]
     Active Substance: DOBUTAMINE HYDROCHLORIDE
     Dosage: 0-200 MCG/^
     Route: 065
     Dates: start: 20180915, end: 20180915
  39. CEFEPIME [Concomitant]
     Active Substance: CEFEPIME HYDROCHLORIDE
     Dosage: 3 GRAM DAILY;
     Dates: start: 20180915, end: 20180915
  40. DOMPERIDON [Concomitant]
     Active Substance: DOMPERIDONE
     Dosage: 10 MILLIGRAM DAILY;
     Route: 065
     Dates: start: 20180916, end: 20180916
  41. MIDAZOLAM [Concomitant]
     Active Substance: MIDAZOLAM HYDROCHLORIDE
     Dosage: 2 MILLIGRAM DAILY;
     Route: 065
     Dates: start: 20180918, end: 20180918
  42. SACUBITRIL/VALSARTAN [Interacting]
     Active Substance: SACUBITRIL\VALSARTAN
     Dosage: 50 MILLIGRAM DAILY;
     Route: 065
     Dates: start: 20180902, end: 20180902
  43. SACUBITRIL/VALSARTAN [Interacting]
     Active Substance: SACUBITRIL\VALSARTAN
     Dosage: 100 MILLIGRAM DAILY;
     Route: 065
     Dates: start: 20180907, end: 20180909
  44. SACUBITRIL/VALSARTAN [Interacting]
     Active Substance: SACUBITRIL\VALSARTAN
     Dosage: 50 MILLIGRAM DAILY;
     Route: 065
     Dates: start: 20180910
  45. PHENPROCOUMON [Concomitant]
     Active Substance: PHENPROCOUMON
     Dosage: 3 MILLIGRAM DAILY;
     Route: 065
     Dates: start: 20180830, end: 20180831
  46. PHENPROCOUMON [Concomitant]
     Active Substance: PHENPROCOUMON
     Dosage: 4.5 MILLIGRAM DAILY;
     Route: 065
     Dates: start: 20180901, end: 20180901
  47. HEPARIN [Concomitant]
     Active Substance: HEPARIN SODIUM
     Dosage: 10000 IU (INTERNATIONAL UNIT) DAILY;
     Route: 065
     Dates: start: 20180821, end: 20180827
  48. HEPARIN [Concomitant]
     Active Substance: HEPARIN SODIUM
     Dosage: 22500 IU (INTERNATIONAL UNIT) DAILY;
     Route: 065
     Dates: start: 20180829, end: 20180829
  49. VALERIAN AND HOPS [Concomitant]
     Dosage: 500 MILLIGRAM DAILY;
     Route: 065
     Dates: start: 20180827, end: 20180908
  50. VALERIAN AND HOPS [Concomitant]
     Dosage: 500 MILLIGRAM DAILY;
     Route: 065
     Dates: start: 20180909, end: 20180909
  51. SODIUM BICARBONATE. [Concomitant]
     Active Substance: SODIUM BICARBONATE
     Dosage: 1000 MILLIGRAM DAILY;
     Route: 065
     Dates: start: 20180829, end: 20180909
  52. GUAIFENESIN/CODEIN PHOSPHATE [Concomitant]
     Dosage: 37 MILLIGRAM DAILY;
     Route: 065
     Dates: start: 20180828, end: 20180829
  53. GUAIFENESIN/CODEIN PHOSPHATE [Concomitant]
     Dosage: 183 MILLIGRAM DAILY;
     Route: 065
     Dates: start: 20180908, end: 20180909
  54. NACL 0.9% [Concomitant]
     Active Substance: SODIUM CHLORIDE
     Dosage: 1000 ML DAILY;
     Route: 065
     Dates: start: 20180831, end: 20180831
  55. NACL 0.9% [Concomitant]
     Active Substance: SODIUM CHLORIDE
     Dosage: 500 ML DAILY;
     Route: 065
     Dates: start: 20180902, end: 20180902
  56. SENNOSIDES. [Concomitant]
     Active Substance: SENNOSIDES
     Dosage: 20 MILLIGRAM DAILY;
     Route: 065
     Dates: start: 20180913, end: 20180917
  57. HUMAN PROTHROMBIN COMPLEX [Concomitant]
     Dosage: 1000  DAILY;
     Route: 065
  58. CERNEVIT [Concomitant]
     Active Substance: VITAMINS
     Dosage: 1 VIALS/DAY
     Route: 065
     Dates: start: 20180911, end: 20180917
  59. METOCLOPRAMIDE. [Concomitant]
     Active Substance: METOCLOPRAMIDE
     Dosage: 10 MILLIGRAM DAILY;
     Route: 065
     Dates: start: 20180915, end: 20180915
  60. PHENYLEPHRINE [Concomitant]
     Active Substance: PHENYLEPHRINE HYDROCHLORIDE
     Dosage: 50 MICROGRAM DAILY;
     Route: 065
     Dates: start: 20180914, end: 20180914
  61. MORPHINE [Concomitant]
     Active Substance: MORPHINE
     Dosage: 13 MILLIGRAM DAILY;
     Route: 065
     Dates: start: 20180918, end: 20180918
  62. SACUBITRIL/VALSARTAN [Interacting]
     Active Substance: SACUBITRIL\VALSARTAN
     Dosage: 150 MILLIGRAM DAILY;
     Route: 065
     Dates: start: 20180831, end: 20180831
  63. PHENPROCOUMON [Concomitant]
     Active Substance: PHENPROCOUMON
     Dosage: 1.5 MILLIGRAM DAILY;
     Route: 065
     Dates: start: 20180908, end: 20180908
  64. FUROSEMIDE. [Concomitant]
     Active Substance: FUROSEMIDE
     Dosage: 80 MILLIGRAM DAILY;
     Route: 065
     Dates: start: 20180914, end: 20180914
  65. FUROSEMIDE. [Concomitant]
     Active Substance: FUROSEMIDE
     Dosage: 33 MILLIGRAM DAILY;
     Route: 065
     Dates: start: 20180916, end: 20180916
  66. SODIUM BICARBONATE. [Concomitant]
     Active Substance: SODIUM BICARBONATE
     Dosage: 3354 MILLIGRAM DAILY;
     Route: 065
     Dates: start: 20180916, end: 20180916
  67. GUAIFENESIN/CODEIN PHOSPHATE [Concomitant]
     Dosage: 73 MILLIGRAM DAILY;
     Route: 065
     Dates: start: 20180830, end: 20180830
  68. GUAIFENESIN/CODEIN PHOSPHATE [Concomitant]
     Dosage: 110 MILLIGRAM DAILY;
     Route: 065
     Dates: start: 20180903, end: 20180907
  69. SENNOSIDES. [Concomitant]
     Active Substance: SENNOSIDES
     Dosage: 15 ML DAILY;
     Route: 065
     Dates: start: 20180907, end: 20180907
  70. GRANISETRON [Concomitant]
     Active Substance: GRANISETRON
     Dosage: 2 MILLIGRAM DAILY;
     Route: 065
     Dates: start: 20180911, end: 20180911
  71. VALSARTAN. [Concomitant]
     Active Substance: VALSARTAN
     Dosage: 120 MILLIGRAM DAILY;
     Route: 065
     Dates: start: 20180912, end: 20180912
  72. THIAMINE. [Concomitant]
     Active Substance: THIAMINE
     Dosage: 300 MILLIGRAM DAILY;
     Route: 065
     Dates: start: 20180914, end: 20180917
  73. CEFEPIME [Concomitant]
     Active Substance: CEFEPIME HYDROCHLORIDE
     Dosage: 1 GRAM DAILY;
     Route: 065
     Dates: start: 20180917, end: 20180917
  74. LEVOSIMENDAN [Concomitant]
     Active Substance: LEVOSIMENDAN
     Dosage: 9.1 MILLIGRAM DAILY;
     Route: 065
     Dates: start: 20180916, end: 20180916
  75. CORDARONE [Suspect]
     Active Substance: AMIODARONE HYDROCHLORIDE
     Dosage: 400 MILLIGRAM DAILY;
     Route: 065
     Dates: start: 20180824, end: 20180827
  76. SACUBITRIL/VALSARTAN [Interacting]
     Active Substance: SACUBITRIL\VALSARTAN
     Dosage: 100 MILLIGRAM DAILY;
     Route: 065
     Dates: start: 20180901, end: 20180901
  77. ASPIRIN CARDIO [Concomitant]
     Active Substance: ASPIRIN
     Indication: CORONARY ARTERY DISEASE
     Dosage: 100 MILLIGRAM DAILY; AT 08:00
     Route: 065
     Dates: start: 20180821, end: 20180904
  78. HEPARIN [Concomitant]
     Active Substance: HEPARIN SODIUM
     Dosage: 2000 IU (INTERNATIONAL UNIT) DAILY;
     Route: 065
     Dates: start: 20180830, end: 20180830
  79. HEPARIN [Concomitant]
     Active Substance: HEPARIN SODIUM
     Dosage: 10000 IU (INTERNATIONAL UNIT) DAILY;
     Route: 065
     Dates: start: 20180912, end: 20180912
  80. HEPARIN [Concomitant]
     Active Substance: HEPARIN SODIUM
     Dosage: 5000 IU (INTERNATIONAL UNIT) DAILY;
     Route: 065
     Dates: start: 20180918, end: 20180918
  81. ACETAMINOPHEN. [Concomitant]
     Active Substance: ACETAMINOPHEN
     Dosage: 2 GRAM DAILY;
     Route: 065
     Dates: start: 20180923, end: 20180923
  82. ACETAMINOPHEN. [Concomitant]
     Active Substance: ACETAMINOPHEN
     Dosage: 1 GRAM DAILY;
     Route: 065
     Dates: start: 20180924, end: 20180926
  83. SODIUM BICARBONATE. [Concomitant]
     Active Substance: SODIUM BICARBONATE
     Dosage: 10584 MILLIGRAM DAILY;
     Route: 065
     Dates: start: 20180913, end: 20180913
  84. GUAIFENESIN/CODEIN PHOSPHATE [Concomitant]
     Dosage: 110 MILLIGRAM DAILY;
     Route: 065
     Dates: start: 20180910, end: 20180910
  85. PARAFFIN OIL [Concomitant]
     Dosage: 20 ML DAILY;
     Route: 065
     Dates: start: 20180913, end: 20180917
  86. PARAFFIN OIL [Concomitant]
     Dosage: 10 ML DAILY;
     Route: 065
     Dates: start: 20180918, end: 20180918
  87. SENNOSIDES. [Concomitant]
     Active Substance: SENNOSIDES
     Dosage: 10 ML DAILY;
     Route: 065
     Dates: start: 20180912, end: 20180912
  88. NITROGLYCERIN. [Concomitant]
     Active Substance: NITROGLYCERIN
     Dosage: 0-3 MG/H
     Route: 065
     Dates: start: 20180910, end: 20180911
  89. BECOZYM FORTE [Concomitant]
     Dosage: 1
     Route: 065
     Dates: start: 20180914, end: 20180917
  90. CORDARONE [Suspect]
     Active Substance: AMIODARONE HYDROCHLORIDE
     Dosage: 575 MILLIGRAM DAILY;
     Route: 065
     Dates: start: 20180912, end: 20180912
  91. CORDARONE [Suspect]
     Active Substance: AMIODARONE HYDROCHLORIDE
     Dosage: 525 MILLIGRAM DAILY;
     Route: 065
     Dates: start: 20180915, end: 20180915
  92. SACUBITRIL/VALSARTAN [Interacting]
     Active Substance: SACUBITRIL\VALSARTAN
     Dosage: 200 MILLIGRAM DAILY;
     Route: 065
     Dates: start: 20180821, end: 20180830
  93. BETALOC ZOK [Concomitant]
     Active Substance: METOPROLOL SUCCINATE
     Dosage: 50 MILLIGRAM DAILY;
     Route: 048
     Dates: start: 20180821, end: 20180831
  94. TORASEMIDE [Concomitant]
     Active Substance: TORSEMIDE
     Dosage: 30 MILLIGRAM DAILY;
     Route: 065
     Dates: start: 20180825, end: 20180828
  95. JANUVIA [Concomitant]
     Active Substance: SITAGLIPTIN PHOSPHATE
     Indication: DIABETES MELLITUS
     Dosage: 50 MILLIGRAM DAILY;
     Route: 065
     Dates: start: 20180820, end: 20180820
  96. HEPARIN [Concomitant]
     Active Substance: HEPARIN SODIUM
     Dosage: 5000 IU (INTERNATIONAL UNIT) DAILY;
     Route: 065
     Dates: start: 20180820, end: 20180820
  97. SODIUM BICARBONATE. [Concomitant]
     Active Substance: SODIUM BICARBONATE
     Dosage: 25200 MILLIGRAM DAILY;
     Route: 065
     Dates: start: 20180912, end: 20180912
  98. SODIUM BICARBONATE. [Concomitant]
     Active Substance: SODIUM BICARBONATE
     Dosage: 22167 MILLIGRAM DAILY;
     Route: 065
     Dates: start: 20180914, end: 20180914
  99. GUAIFENESIN/CODEIN PHOSPHATE [Concomitant]
     Dosage: 293 MILLIGRAM DAILY;
     Route: 065
     Dates: start: 20180911, end: 20180911
  100. NACL 0.9% [Concomitant]
     Active Substance: SODIUM CHLORIDE
     Dosage: 500 ML DAILY;
     Route: 065
     Dates: start: 20180830, end: 20180830
  101. PARAFFIN OIL [Concomitant]
     Dosage: 10 ML DAILY;
     Route: 065
     Dates: start: 20180912, end: 20180912
  102. GRANISETRON [Concomitant]
     Active Substance: GRANISETRON
     Dosage: 1 MILLIGRAM DAILY;
     Route: 065
     Dates: start: 20180910, end: 20180910
  103. METOCLOPRAMIDE. [Concomitant]
     Active Substance: METOCLOPRAMIDE
     Dosage: 10 MILLIGRAM DAILY;
     Route: 065
     Dates: start: 20180910, end: 20180910
  104. CORDARONE [Suspect]
     Active Substance: AMIODARONE HYDROCHLORIDE
     Dosage: 600 MILLIGRAM DAILY;
     Route: 065
     Dates: start: 20180828, end: 20190901
  105. CORDARONE [Suspect]
     Active Substance: AMIODARONE HYDROCHLORIDE
     Dosage: 900 MILLIGRAM DAILY;
     Route: 065
     Dates: start: 20180913, end: 20180913
  106. TORASEMIDE [Concomitant]
     Active Substance: TORSEMIDE
     Dosage: 20 MILLIGRAM DAILY;
     Route: 065
     Dates: start: 20180916, end: 20180917
  107. JANUVIA [Concomitant]
     Active Substance: SITAGLIPTIN PHOSPHATE
     Dosage: 25 MILLIGRAM DAILY;
     Route: 065
     Dates: start: 20180830, end: 20180831
  108. PHENPROCOUMON [Concomitant]
     Active Substance: PHENPROCOUMON
     Dosage: .75 MILLIGRAM DAILY;
     Route: 065
     Dates: start: 20180909, end: 20180909
  109. HEPARIN [Concomitant]
     Active Substance: HEPARIN SODIUM
     Dosage: 10000 IU (INTERNATIONAL UNIT) DAILY;
     Route: 065
     Dates: start: 20180913, end: 20180917
  110. FUROSEMIDE. [Concomitant]
     Active Substance: FUROSEMIDE
     Dosage: 40 MILLIGRAM DAILY;
     Route: 065
     Dates: start: 20180822, end: 20180822
  111. FUROSEMIDE. [Concomitant]
     Active Substance: FUROSEMIDE
     Dosage: 40 MILLIGRAM DAILY;
     Route: 065
     Dates: start: 20180827, end: 20180827
  112. GUAIFENESIN/CODEIN PHOSPHATE [Concomitant]
     Dosage: 257 MILLIGRAM DAILY;
     Route: 065
     Dates: start: 20180831, end: 20180831
  113. GUAIFENESIN/CODEIN PHOSPHATE [Concomitant]
     Dosage: 73 MILLIGRAM DAILY;
     Route: 065
     Dates: start: 20180912, end: 20180912
  114. GRANISETRON [Concomitant]
     Active Substance: GRANISETRON
     Dosage: 2 MILLIGRAM DAILY;
     Route: 065
     Dates: start: 20180908, end: 20180908
  115. PHYTOMENADIONE [Concomitant]
     Active Substance: PHYTONADIONE
     Dosage: 10 MILLIGRAM DAILY;
     Dates: start: 20180910, end: 20180917
  116. DOBUTAMIN [Concomitant]
     Active Substance: DOBUTAMINE HYDROCHLORIDE
     Dosage: 0-100 MCG/^
     Route: 065
     Dates: start: 20180913, end: 20180913
  117. VALSARTAN. [Concomitant]
     Active Substance: VALSARTAN
     Dosage: 160 MILLIGRAM DAILY;
     Route: 065
     Dates: start: 20180915, end: 20180915
  118. CEFEPIME [Concomitant]
     Active Substance: CEFEPIME HYDROCHLORIDE
     Dosage: 2 GRAM DAILY;
     Route: 065
     Dates: start: 20180916, end: 20180916
  119. NORADRENALINE [Concomitant]
     Active Substance: NOREPINEPHRINE
     Dosage: 0-10
     Route: 065
     Dates: start: 20180917, end: 20180918
  120. MIDAZOLAM [Concomitant]
     Active Substance: MIDAZOLAM HYDROCHLORIDE
     Dosage: 5 MILLIGRAM DAILY;
     Route: 065
     Dates: start: 20180919, end: 20180919
  121. SACUBITRIL/VALSARTAN [Interacting]
     Active Substance: SACUBITRIL\VALSARTAN
     Dosage: 50 MILLIGRAM DAILY;
     Route: 065
     Dates: start: 20180906, end: 20180906
  122. PHENPROCOUMON [Concomitant]
     Active Substance: PHENPROCOUMON
     Dosage: 1.5 MILLIGRAM DAILY;
     Route: 065
     Dates: start: 20180906, end: 20180906
  123. HEPARIN [Concomitant]
     Active Substance: HEPARIN SODIUM
     Dosage: 7500 IU (INTERNATIONAL UNIT) DAILY;
     Route: 065
     Dates: start: 20180831, end: 20180831
  124. FUROSEMIDE. [Concomitant]
     Active Substance: FUROSEMIDE
     Dosage: 20 MILLIGRAM DAILY;
     Route: 065
     Dates: start: 20180826, end: 20180826
  125. FUROSEMIDE. [Concomitant]
     Active Substance: FUROSEMIDE
     Dosage: 40 MILLIGRAM DAILY;
     Route: 065
     Dates: start: 20180909, end: 20180909
  126. ACETAMINOPHEN. [Concomitant]
     Active Substance: ACETAMINOPHEN
     Dosage: 1 GRAM DAILY;
     Route: 065
     Dates: start: 20180908, end: 20180908
  127. SODIUM BICARBONATE. [Concomitant]
     Active Substance: SODIUM BICARBONATE
     Dosage: 10208 MILLIGRAM DAILY;
     Route: 065
     Dates: start: 20180915, end: 20180915
  128. GUAIFENESIN/CODEIN PHOSPHATE [Concomitant]
     Dosage: 183 MILLIGRAM DAILY;
     Route: 065
     Dates: start: 20180901, end: 20180902
  129. PARAFFIN OIL [Concomitant]
     Dosage: 15 ML DAILY;
     Route: 065
     Dates: start: 20180907, end: 20180907
  130. DOBUTAMIN [Concomitant]
     Active Substance: DOBUTAMINE HYDROCHLORIDE
     Dosage: 0-150 MCG/^
     Route: 065
     Dates: start: 20180914, end: 20180914
  131. ADDAVEN [Concomitant]
     Active Substance: ELECTROLYTES NOS\MINERALS
     Dosage: 1 VIAL/DAY
     Route: 065
     Dates: start: 20180911, end: 20180917
  132. CODEIN [Concomitant]
     Active Substance: CODEINE
     Dosage: 100 MILLIGRAM DAILY;
     Route: 065
     Dates: start: 20180913, end: 20180915
  133. NORADRENALINE [Concomitant]
     Active Substance: NOREPINEPHRINE
     Dosage: 0-6 MCG/^
     Route: 065
     Dates: start: 20180915, end: 20180915
  134. NORADRENALINE [Concomitant]
     Active Substance: NOREPINEPHRINE
     Dosage: 0-13 MCG/^
     Route: 065
     Dates: start: 20180916, end: 20180916
  135. MORPHINE [Concomitant]
     Active Substance: MORPHINE
     Dosage: 24 MILLIGRAM DAILY;
     Route: 065
     Dates: start: 20180919, end: 20180919

REACTIONS (12)
  - Rhabdomyolysis [Recovering/Resolving]
  - Muscular weakness [Unknown]
  - Renal failure [Recovering/Resolving]
  - Gait inability [Unknown]
  - Multiple organ dysfunction syndrome [Unknown]
  - Jaundice [Unknown]
  - Low cardiac output syndrome [Unknown]
  - Vasoconstriction [Unknown]
  - Drug level increased [Unknown]
  - Hepatic failure [Recovering/Resolving]
  - Oedema [Unknown]
  - Drug interaction [Unknown]
